FAERS Safety Report 21885726 (Version 1)
Quarter: 2023Q1

REPORT INFORMATION
  Report Type: Spontaneous
  Country: US (occurrence: None)
  Receive Date: 20230118
  Receipt Date: 20230118
  Transmission Date: 20230418
  Serious: No
  Sender: FDA-Public Use
  Company Number: None

PATIENT
  Age: 72 Year
  Sex: Female
  Weight: 47.25 kg

DRUGS (1)
  1. TYMLOS [Suspect]
     Active Substance: ABALOPARATIDE
     Indication: Osteoporosis
     Dates: start: 20220903, end: 20221126

REACTIONS (14)
  - Palpitations [None]
  - Fatigue [None]
  - Fatigue [None]
  - Pain in extremity [None]
  - Middle insomnia [None]
  - Burning sensation [None]
  - Fear [None]
  - Peripheral swelling [None]
  - Paraesthesia [None]
  - Therapy interrupted [None]
  - Electric shock sensation [None]
  - Mobility decreased [None]
  - Asthenia [None]
  - Drug monitoring procedure incorrectly performed [None]

NARRATIVE: CASE EVENT DATE: 20220903
